FAERS Safety Report 12771160 (Version 2)
Quarter: 2016Q4

REPORT INFORMATION
  Report Type: Spontaneous
  Country: FR (occurrence: FR)
  Receive Date: 20160922
  Receipt Date: 20161025
  Transmission Date: 20170207
  Serious: Yes (Hospitalization)
  Sender: FDA-Public Use
  Company Number: FR-PFIZER INC-2016439026

PATIENT
  Age: 50 Year
  Sex: Female

DRUGS (20)
  1. PANTOPRAZOLE [Concomitant]
     Active Substance: PANTOPRAZOLE SODIUM
  2. ESCITALOPRAM [Concomitant]
     Active Substance: ESCITALOPRAM OXALATE
  3. BACLOFEN. [Concomitant]
     Active Substance: BACLOFEN
  4. NOVATREX NOS [Suspect]
     Active Substance: AZITHROMYCIN OR METHOTREXATE SODIUM
     Dosage: 12.5 MG, WEEKLY
     Route: 048
  5. AMLOR [Concomitant]
     Active Substance: AMLODIPINE BESYLATE
  6. RISEDRONATE SODIUM. [Concomitant]
     Active Substance: RISEDRONATE SODIUM
  7. ATORVASTATIN [Concomitant]
     Active Substance: ATORVASTATIN
  8. OXYCODONE HYDROCHLORIDE. [Concomitant]
     Active Substance: OXYCODONE HYDROCHLORIDE
  9. REMICADE [Suspect]
     Active Substance: INFLIXIMAB
     Indication: SAPHO SYNDROME
     Dosage: 450 MG, EVERY 6 WEEKS
     Route: 042
     Dates: start: 2005, end: 20160628
  10. CORTANCYL [Suspect]
     Active Substance: PREDNISONE
     Indication: SAPHO SYNDROME
     Dosage: UNK
     Route: 048
     Dates: start: 2005
  11. PRAZEPAM [Concomitant]
     Active Substance: PRAZEPAM
  12. OROCAL D3 [Concomitant]
     Active Substance: CALCIUM CARBONATE\CHOLECALCIFEROL
  13. PERINDOPRIL [Concomitant]
     Active Substance: PERINDOPRIL
  14. NOVATREX NOS [Suspect]
     Active Substance: AZITHROMYCIN OR METHOTREXATE SODIUM
     Indication: SAPHO SYNDROME
     Dosage: UNK
     Route: 048
     Dates: start: 2005
  15. KARDEGIC [Concomitant]
     Active Substance: ASPIRIN LYSINE
  16. MIRTAZAPINE. [Concomitant]
     Active Substance: MIRTAZAPINE
  17. DIFFU K [Concomitant]
     Active Substance: POTASSIUM CHLORIDE
  18. CORTANCYL [Suspect]
     Active Substance: PREDNISONE
     Dosage: 10 MG, DAILY
     Route: 048
  19. SPASFON /00765801/ [Concomitant]
     Active Substance: PHLOROGLUCINOL\1,3,5-TRIMETHOXYBENZENE
  20. SPECIAFOLDINE [Concomitant]
     Active Substance: FOLIC ACID
     Indication: SAPHO SYNDROME
     Dosage: UNK
     Dates: start: 2005

REACTIONS (3)
  - Pneumonia [Recovered/Resolved]
  - Product use issue [Unknown]
  - Asthma [Recovered/Resolved]

NARRATIVE: CASE EVENT DATE: 20160616
